FAERS Safety Report 21363161 (Version 2)
Quarter: 2022Q4

REPORT INFORMATION
  Report Type: Report from Study
  Country: US (occurrence: US)
  Receive Date: 20220922
  Receipt Date: 20221104
  Transmission Date: 20230112
  Serious: Yes (Other)
  Sender: FDA-Public Use
  Company Number: US-GILEAD-2022-0598119

PATIENT
  Age: 68 Year
  Sex: Female
  Weight: 86.168 kg

DRUGS (36)
  1. AMBRISENTAN [Suspect]
     Active Substance: AMBRISENTAN
     Indication: Pulmonary arterial hypertension
     Dosage: 5 MG, QD
     Route: 048
     Dates: start: 20160504
  2. AMBRISENTAN [Suspect]
     Active Substance: AMBRISENTAN
     Indication: Pulmonary hypertension
  3. ADEMPAS [Concomitant]
     Active Substance: RIOCIGUAT
  4. ALBUTEROL SULFATE [Concomitant]
     Active Substance: ALBUTEROL SULFATE
  5. AZELASTINE [Concomitant]
     Active Substance: AZELASTINE
  6. AZITHROMYCIN [Concomitant]
     Active Substance: AZITHROMYCIN
  7. BUMETANIDE [Concomitant]
     Active Substance: BUMETANIDE
  8. CARTIA XT [Concomitant]
     Active Substance: DILTIAZEM HYDROCHLORIDE
  9. CEFDINIR [Concomitant]
     Active Substance: CEFDINIR
  10. CEFUROXIME AXETIL [Concomitant]
     Active Substance: CEFUROXIME AXETIL
  11. CLOPIDOGREL [Concomitant]
     Active Substance: CLOPIDOGREL BISULFATE
  12. DILTIAZEM [Concomitant]
     Active Substance: DILTIAZEM
  13. DILTIAZEM [Concomitant]
     Active Substance: DILTIAZEM
  14. ELIQUIS [Concomitant]
     Active Substance: APIXABAN
  15. FLECAINIDE [Concomitant]
     Active Substance: FLECAINIDE
  16. FLUTICASONE FUROATE\SALMETEROL XINAFOATE [Concomitant]
     Active Substance: FLUTICASONE FUROATE\SALMETEROL XINAFOATE
  17. FLUZONE HIGH-DOSE NOS [Concomitant]
     Active Substance: INFLUENZA A VIRUS A/CALIFORNIA/7/2009 X-179A (H1N1) ANTIGEN (FORMALDEHYDE INACTIVATED)\INFLUENZA A V
  18. HYDROCORTISONE [Concomitant]
     Active Substance: HYDROCORTISONE
  19. ALBUTEROL\IPRATROPIUM [Concomitant]
     Active Substance: ALBUTEROL\IPRATROPIUM
  20. LEVOFLOXACIN [Concomitant]
     Active Substance: LEVOFLOXACIN
  21. LISINOPRIL [Concomitant]
     Active Substance: LISINOPRIL
  22. MECLIZINE [Concomitant]
     Active Substance: MECLIZINE HYDROCHLORIDE
  23. METHOCARBAMOL [Concomitant]
     Active Substance: METHOCARBAMOL
  24. METHYLPREDNISOLONE [Concomitant]
     Active Substance: METHYLPREDNISOLONE
  25. METOLAZONE [Concomitant]
     Active Substance: METOLAZONE
  26. OXYCODONE AND ACETAMINOPHEN [Concomitant]
     Active Substance: ACETAMINOPHEN\OXYCODONE HYDROCHLORIDE
  27. PANTOPRAZOLE [Concomitant]
     Active Substance: PANTOPRAZOLE
  28. POTASSIUM CHLORIDE [Concomitant]
     Active Substance: POTASSIUM CHLORIDE
  29. PRAVASTATIN [Concomitant]
     Active Substance: PRAVASTATIN
     Dosage: UNK
     Dates: start: 20211220
  30. PRAVASTATIN [Concomitant]
     Active Substance: PRAVASTATIN
     Dosage: UNK
     Dates: start: 20221019
  31. PROAIR HFA [Concomitant]
     Active Substance: ALBUTEROL SULFATE
  32. SPIRIVA RESPIMAT [Concomitant]
     Active Substance: TIOTROPIUM BROMIDE
     Dosage: UNK
     Dates: start: 20211008
  33. SPIRIVA RESPIMAT [Concomitant]
     Active Substance: TIOTROPIUM BROMIDE
     Dosage: UNK
     Dates: start: 20221025
  34. SPIRONOLACTONE [Concomitant]
     Active Substance: SPIRONOLACTONE
  35. SUCRALFATE [Concomitant]
     Active Substance: SUCRALFATE
  36. AMBRISENTAN [Concomitant]
     Active Substance: AMBRISENTAN

REACTIONS (3)
  - Thrombosis [Unknown]
  - Constipation [Recovered/Resolved]
  - Headache [Recovered/Resolved]

NARRATIVE: CASE EVENT DATE: 20220915
